FAERS Safety Report 13489485 (Version 1)
Quarter: 2017Q2

REPORT INFORMATION
  Report Type: Spontaneous
  Country: US (occurrence: US)
  Receive Date: 20170427
  Receipt Date: 20170427
  Transmission Date: 20170830
  Serious: Yes (Life-Threatening, Hospitalization)
  Sender: FDA-Public Use
  Company Number: None

PATIENT
  Age: 36 Year
  Sex: Female
  Weight: 81 kg

DRUGS (3)
  1. LAMOTRIGINE. [Suspect]
     Active Substance: LAMOTRIGINE
     Indication: BIPOLAR II DISORDER
     Route: 048
     Dates: start: 20170404, end: 20170412
  2. LAMOTRIGINE. [Suspect]
     Active Substance: LAMOTRIGINE
     Indication: HYPOMANIA
     Route: 048
     Dates: start: 20170404, end: 20170412
  3. AMOXICILLIN. [Concomitant]
     Active Substance: AMOXICILLIN

REACTIONS (15)
  - Rash [None]
  - Swelling face [None]
  - Burning sensation [None]
  - Feeling abnormal [None]
  - Self-medication [None]
  - Mood altered [None]
  - Candida infection [None]
  - Paraesthesia [None]
  - Refusal of treatment by patient [None]
  - Lymphadenopathy [None]
  - Chemical burn [None]
  - Rash pruritic [None]
  - Urinary tract infection [None]
  - Oral mucosal blistering [None]
  - Rash vesicular [None]

NARRATIVE: CASE EVENT DATE: 20170422
